FAERS Safety Report 17288001 (Version 5)
Quarter: 2020Q1

REPORT INFORMATION
  Report Type: Spontaneous
  Country: JP (occurrence: JP)
  Receive Date: 20200120
  Receipt Date: 20200327
  Transmission Date: 20200409
  Serious: Yes (Death, Life-Threatening, Hospitalization, Disabling, Other)
  Sender: FDA-Public Use
  Company Number: JP-AMGEN-JPNSP2020008212

PATIENT
  Age: 84 Year
  Sex: Male
  Weight: 55 kg

DRUGS (16)
  1. TRAMCET [Concomitant]
     Active Substance: ACETAMINOPHEN\TRAMADOL
     Dosage: UNK, BID
     Dates: start: 20190528
  2. PURSENNIDE [SENNOSIDE A+B] [Concomitant]
     Active Substance: SENNOSIDES A AND B
     Dosage: 2, QD
     Dates: start: 20190528
  3. EVENITY [Suspect]
     Active Substance: ROMOSOZUMAB-AQQG
     Dosage: 210 MILLIGRAM
     Route: 058
     Dates: start: 20190711
  4. EVENITY [Suspect]
     Active Substance: ROMOSOZUMAB-AQQG
     Dosage: 210 MILLIGRAM
     Route: 058
     Dates: start: 20190809
  5. BAKTAR [Concomitant]
     Active Substance: SULFAMETHOXAZOLE\TRIMETHOPRIM
     Dosage: UNK UNK, QD
     Dates: start: 20190528
  6. EVENITY [Suspect]
     Active Substance: ROMOSOZUMAB-AQQG
     Dosage: 210 MILLIGRAM
     Route: 058
     Dates: start: 20191004
  7. AMBROXOL [AMBROXOL HYDROCHLORIDE] [Concomitant]
     Dosage: UNK
  8. EDIROL [Concomitant]
     Active Substance: ELDECALCITOL
     Dosage: UNK, QD
     Dates: start: 20190611
  9. LASIX [Concomitant]
     Active Substance: FUROSEMIDE
     Dosage: UNK, QD
     Dates: start: 20190528
  10. EVENITY [Suspect]
     Active Substance: ROMOSOZUMAB-AQQG
     Dosage: 210 MILLIGRAM
     Route: 058
     Dates: start: 20191101, end: 20191101
  11. CLARITH [Concomitant]
     Active Substance: CLARITHROMYCIN
     Dosage: UNK
  12. OLOPATADINE. [Concomitant]
     Active Substance: OLOPATADINE
     Dosage: UNK, BID
     Dates: start: 20190528
  13. RABEPRAZOLE [Concomitant]
     Active Substance: RABEPRAZOLE
     Dosage: UNK, QD
     Dates: start: 20190528
  14. XARELTO [Concomitant]
     Active Substance: RIVAROXABAN
     Dosage: UNK, QD
     Dates: start: 20190528
  15. EVENITY [Suspect]
     Active Substance: ROMOSOZUMAB-AQQG
     Indication: OSTEOPOROSIS
     Dosage: 210 MILLIGRAM
     Route: 058
     Dates: start: 20190611
  16. PREDNISOLONE. [Suspect]
     Active Substance: PREDNISOLONE
     Indication: PRODUCT USED FOR UNKNOWN INDICATION
     Dosage: 0.5 UNK, BID
     Route: 065
     Dates: start: 20190528

REACTIONS (6)
  - Chest pain [Fatal]
  - Pyelonephritis acute [Fatal]
  - Dyspnoea [Fatal]
  - Ill-defined disorder [Recovering/Resolving]
  - Pneumocystis jirovecii pneumonia [Fatal]
  - Septic shock [Fatal]

NARRATIVE: CASE EVENT DATE: 201911
